FAERS Safety Report 5078383-1 (Version None)
Quarter: 2006Q3

REPORT INFORMATION
  Report Type: 
  Country: None (occurrence: None)
  Receive Date: 20060811
  Receipt Date: 20060731
  Transmission Date: 20061208
  Serious: Yes (Hospitalization)
  Sender: FDA-Public Use
  Company Number: FR-GLAXOSMITHKLINE-B0433633A

PATIENT
  Age: 47 Year
  Sex: Female

DRUGS (5)
  1. DEROXAT [Suspect]
     Indication: DEPRESSION
     Dosage: 40MG PER DAY
     Route: 048
     Dates: end: 20051129
  2. ENDOTELON [Suspect]
     Indication: VARICOSE VEIN
     Dosage: 2UNIT PER DAY
     Route: 048
     Dates: end: 20051129
  3. TEGRETOL [Suspect]
     Indication: DEPRESSION
     Dosage: 400MG PER DAY
     Route: 048
     Dates: end: 20051129
  4. TRANXENE [Concomitant]
     Indication: DEPRESSION
     Dosage: 100MG PER DAY
     Route: 048
     Dates: end: 20060201
  5. EFFEXOR [Concomitant]
     Indication: DEPRESSION
     Dosage: 6UNIT PER DAY
     Dates: start: 20051101

REACTIONS (3)
  - DRUG INEFFECTIVE [None]
  - SYSTEMIC LUPUS ERYTHEMATOSUS [None]
  - THERAPY NON-RESPONDER [None]
